FAERS Safety Report 9173949 (Version 1)
Quarter: 2013Q1

REPORT INFORMATION
  Report Type: Spontaneous
  Country: US (occurrence: None)
  Receive Date: 20130314
  Receipt Date: 20130314
  Transmission Date: 20140127
  Serious: Yes (Other)
  Sender: FDA-Public Use
  Company Number: COL_13089_2013

PATIENT
  Age: 27 Year
  Sex: Female

DRUGS (1)
  1. COLGATE TRIPLE ACTION MINT GEL TOOTHPASTE [Suspect]
     Indication: DENTAL CARE
     Dosage: (NORMAL AMOUNT/ TWICE/ ORAL)
     Route: 048
     Dates: start: 20130206, end: 20130207

REACTIONS (2)
  - Headache [None]
  - Anaphylactic shock [None]
